FAERS Safety Report 7973125-1 (Version None)
Quarter: 2011Q4

REPORT INFORMATION
  Report Type: 
  Country: None (occurrence: None)
  Receive Date: 20111213
  Receipt Date: 20111205
  Transmission Date: 20120403
  Serious: Yes (Death, Other)
  Sender: FDA-Public Use
  Company Number: DE-ASTELLAS-2011US008292

PATIENT
  Age: 66 Year
  Sex: Female

DRUGS (3)
  1. TARCEVA [Suspect]
     Dosage: UNK
     Route: 048
  2. TARCEVA [Suspect]
     Indication: NON-SMALL CELL LUNG CANCER
     Dosage: 150 MG, UID/QD
     Route: 048
     Dates: start: 20090201
  3. TARCEVA [Suspect]
     Dosage: 25 MG, UID/QD
     Route: 048
     Dates: start: 20100101

REACTIONS (3)
  - PARANEOPLASTIC SYNDROME [None]
  - DISEASE PROGRESSION [None]
  - DRUG RESISTANCE [None]
